FAERS Safety Report 6011260-8 (Version None)
Quarter: 2008Q4

REPORT INFORMATION
  Report Type: 
  Country: None (occurrence: None)
  Receive Date: 20081218
  Receipt Date: 20081211
  Transmission Date: 20090506
  Serious: Yes (Hospitalization)
  Sender: FDA-Public Use
  Company Number: US-WATSON-2008-07319

PATIENT
  Sex: Male

DRUGS (1)
  1. QUININE SULFATE (WATSON LABORATORIES) [Suspect]
     Indication: MUSCLE SPASMS
     Dosage: UNK
     Route: 048
     Dates: start: 20010424

REACTIONS (2)
  - BLOOD DISORDER [None]
  - UNEVALUABLE EVENT [None]
